FAERS Safety Report 5451396-3 (Version None)
Quarter: 2007Q3

REPORT INFORMATION
  Report Type: 
  Country: None (occurrence: None)
  Receive Date: 20070913
  Receipt Date: 20070906
  Transmission Date: 20080115
  Serious: Yes (Other)
  Sender: FDA-Public Use
  Company Number: A0669531A

PATIENT
  Age: 73 Year
  Sex: Male

DRUGS (4)
  1. MALARONE [Suspect]
     Indication: MALARIA PROPHYLAXIS
     Dosage: 1MG PER DAY
     Route: 048
     Dates: start: 20070705, end: 20070728
  2. BLOOD PRESSURE MEDICATION [Concomitant]
  3. YELLOW FEVER VACCINE [Concomitant]
     Dates: start: 20070101
  4. TYPHOID VACCINE [Concomitant]

REACTIONS (6)
  - HEADACHE [None]
  - INFECTION [None]
  - MALAISE [None]
  - MALARIA [None]
  - PYREXIA [None]
  - SUDDEN ONSET OF SLEEP [None]
